FAERS Safety Report 7921148-0 (Version None)
Quarter: 2011Q4

REPORT INFORMATION
  Report Type: 
  Country: None (occurrence: None)
  Receive Date: 20111117
  Receipt Date: 20111109
  Transmission Date: 20120403
  Serious: Yes (Other)
  Sender: FDA-Public Use
  Company Number: PHHY2011US099534

PATIENT
  Age: 50 Year
  Sex: Female
  Weight: 106 kg

DRUGS (1)
  1. ENOXAPARIN SODIUM [Suspect]
     Indication: EMBOLISM VENOUS
     Dosage: 0.75 MG/KG, EVERY 12H

REACTIONS (3)
  - RESPIRATORY FAILURE [None]
  - INFLAMMATORY BOWEL DISEASE [None]
  - HAEMORRHAGE [None]
